FAERS Safety Report 6380389-7 (Version None)
Quarter: 2009Q3

REPORT INFORMATION
  Report Type: 
  Country: None (occurrence: None)
  Receive Date: 20090929
  Receipt Date: 20090923
  Transmission Date: 20100115
  Serious: Yes (Death)
  Sender: FDA-Public Use
  Company Number: DE-AVENTIS-200912390DE

PATIENT
  Age: 66 Year
  Sex: Male

DRUGS (2)
  1. TAXOTERE [Suspect]
     Route: 042
     Dates: start: 20090805, end: 20090805
  2. CISPLATIN [Suspect]
     Route: 042
     Dates: start: 20090805, end: 20090805

REACTIONS (1)
  - DEATH [None]
